FAERS Safety Report 5476902-4 (Version None)
Quarter: 2007Q4

REPORT INFORMATION
  Report Type: 
  Country: None (occurrence: None)
  Receive Date: 20071002
  Receipt Date: 20070925
  Transmission Date: 20080405
  Serious: Yes (Other)
  Sender: FDA-Public Use
  Company Number: 163-20785-07060159

PATIENT
  Age: 30 Year
  Sex: Female

DRUGS (2)
  1. THALOMID [Suspect]
     Indication: BEHCET'S SYNDROME
     Dosage: 100 MG, DAILY X28 DAYS, ORAL, 100-250 MG, DAILY X28 DAYS, ORAL
     Route: 048
     Dates: start: 20040101, end: 20040401
  2. THALOMID [Suspect]
     Indication: BEHCET'S SYNDROME
     Dosage: 100 MG, DAILY X28 DAYS, ORAL, 100-250 MG, DAILY X28 DAYS, ORAL
     Route: 048
     Dates: start: 20070510

REACTIONS (2)
  - PREMATURE MENOPAUSE [None]
  - THERAPEUTIC AGENT TOXICITY [None]
